FAERS Safety Report 15619697 (Version 1)
Quarter: 2018Q4

REPORT INFORMATION
  Report Type: Spontaneous
  Country: NO (occurrence: NO)
  Receive Date: 20181115
  Receipt Date: 20181115
  Transmission Date: 20190205
  Serious: Yes (Death, Hospitalization)
  Sender: FDA-Public Use
  Company Number: NO-ROCHE-691786

PATIENT
  Age: 70 Year
  Sex: Male

DRUGS (17)
  1. BACTRIM [Concomitant]
     Active Substance: SULFAMETHOXAZOLE\TRIMETHOPRIM
     Route: 065
     Dates: start: 20091001
  2. VINCRISTINE [Concomitant]
     Active Substance: VINCRISTINE
     Indication: DIFFUSE LARGE B-CELL LYMPHOMA
     Route: 065
     Dates: start: 20090611, end: 20090723
  3. MITOXANTRONE [Suspect]
     Active Substance: MITOXANTRONE HYDROCHLORIDE
     Indication: PRODUCT USED FOR UNKNOWN INDICATION
     Dosage: UNK UNK, Q3WK
     Route: 065
     Dates: start: 20090611, end: 20090723
  4. SULFAMETHOXAZOLE/TRIMETHOPRIM [Concomitant]
     Active Substance: SULFAMETHOXAZOLE\TRIMETHOPRIM
     Route: 065
     Dates: start: 20091001
  5. BENZYLPENICILLIN [Concomitant]
     Active Substance: PENICILLIN G
     Indication: PNEUMONIA BACTERIAL
     Route: 042
  6. MERONEM [Concomitant]
     Active Substance: MEROPENEM
     Indication: PRODUCT USED FOR UNKNOWN INDICATION
     Route: 065
  7. DIFLUCAN [Concomitant]
     Active Substance: FLUCONAZOLE
     Dosage: UNK UNK, UNK
     Route: 065
     Dates: start: 20090916
  8. CYTARABIN [Concomitant]
     Active Substance: CYTARABINE
     Indication: DIFFUSE LARGE B-CELL LYMPHOMA
     Route: 065
     Dates: start: 20090909, end: 20090909
  9. SENDOXAN [Concomitant]
     Active Substance: CYCLOPHOSPHAMIDE
     Route: 065
  10. NEULASTA [Interacting]
     Active Substance: PEGFILGRASTIM
     Indication: DIFFUSE LARGE B-CELL LYMPHOMA
     Route: 065
  11. CYCLOPHOSPHAMIDE. [Interacting]
     Active Substance: CYCLOPHOSPHAMIDE
     Indication: DIFFUSE LARGE B-CELL LYMPHOMA
     Route: 065
     Dates: start: 20090611, end: 20090723
  12. MITOXANTRONE [Concomitant]
     Active Substance: MITOXANTRONE HYDROCHLORIDE
     Indication: DIFFUSE LARGE B-CELL LYMPHOMA
     Route: 065
     Dates: start: 20090611, end: 20090723
  13. ETOPOSIDE. [Concomitant]
     Active Substance: ETOPOSIDE
     Indication: DIFFUSE LARGE B-CELL LYMPHOMA
     Route: 065
     Dates: start: 200909, end: 200909
  14. MABTHERA [Interacting]
     Active Substance: RITUXIMAB
     Indication: DIFFUSE LARGE B-CELL LYMPHOMA
     Dosage: UNK
     Route: 065
     Dates: start: 20090611, end: 20090723
  15. RITUXIMAB. [Suspect]
     Active Substance: RITUXIMAB
     Indication: PRODUCT USED FOR UNKNOWN INDICATION
     Dosage: TOTAL OF 3 TREATMENTS
     Route: 065
     Dates: start: 20090611, end: 20090723
  16. GARAMYCIN [Concomitant]
     Active Substance: GENTAMICIN SULFATE
     Indication: PNEUMONIA BACTERIAL
     Route: 042
  17. PREDNISOLONE. [Concomitant]
     Active Substance: PREDNISOLONE
     Indication: DIFFUSE LARGE B-CELL LYMPHOMA
     Dosage: TOTAL 3 TREATMENTS
     Route: 065
     Dates: start: 20090611, end: 20090909

REACTIONS (5)
  - Respiratory failure [Fatal]
  - Pneumonitis [Recovered/Resolved]
  - Drug interaction [Unknown]
  - Chest X-ray abnormal [Fatal]
  - Pneumonitis [Unknown]

NARRATIVE: CASE EVENT DATE: 20090809
